FAERS Safety Report 12740422 (Version 1)
Quarter: 2016Q3

REPORT INFORMATION
  Report Type: Other
  Country: None (occurrence: US)
  Receive Date: 20160913
  Receipt Date: 20160913
  Transmission Date: 20161109
  Serious: Yes (Hospitalization, Other)
  Sender: FDA-Public Use
  Company Number: US-GUTHY-RENKER LLC-1057295

PATIENT
  Age: 56 Year
  Sex: Female

DRUGS (2)
  1. IT COSMETICS BYE BYE FOUNDATION SPF 50+ [Suspect]
     Active Substance: TITANIUM DIOXIDE\ZINC OXIDE
     Indication: PROPHYLAXIS AGAINST SOLAR RADIATION
     Route: 061
     Dates: start: 20160830
  2. ASACOL [Concomitant]
     Active Substance: MESALAMINE

REACTIONS (4)
  - Wrong technique in product usage process [None]
  - Rash generalised [None]
  - Pyrexia [Recovered/Resolved]
  - Burning sensation [None]

NARRATIVE: CASE EVENT DATE: 20160831
